FAERS Safety Report 6051988-7 (Version None)
Quarter: 2009Q1

REPORT INFORMATION
  Report Type: 
  Country: None (occurrence: None)
  Receive Date: 20090122
  Receipt Date: 20090122
  Transmission Date: 20090719
  Serious: No
  Sender: FDA-Public Use
  Company Number: None

PATIENT
  Sex: Male
  Weight: 70.3075 kg

DRUGS (2)
  1. POLYSPORIN [Suspect]
     Indication: BIOPSY SKIN
     Dosage: 3 TIMES/DAY TOP
     Route: 061
  2. POLYSPORIN [Suspect]
     Indication: POSTOPERATIVE CARE
     Dosage: 3 TIMES/DAY TOP
     Route: 061

REACTIONS (2)
  - RASH [None]
  - URTICARIA [None]
